FAERS Safety Report 6918212-1 (Version None)
Quarter: 2010Q3

REPORT INFORMATION
  Report Type: 
  Country: None (occurrence: None)
  Receive Date: 20100806
  Receipt Date: 20100726
  Transmission Date: 20110219
  Serious: Yes (Hospitalization)
  Sender: FDA-Public Use
  Company Number: 7012136

PATIENT
  Age: 43 Year
  Sex: Female
  Weight: 58 kg

DRUGS (1)
  1. REBIF [Suspect]
     Indication: MULTIPLE SCLEROSIS
     Dosage: 44 MCG, 3 IN 1 WK, SUBCUTANEOUS
     Route: 058
     Dates: start: 20100408

REACTIONS (6)
  - BLOOD GLUCOSE INCREASED [None]
  - FALL [None]
  - FATIGUE [None]
  - HEMIPARESIS [None]
  - HYPERTENSION [None]
  - MULTIPLE SCLEROSIS [None]
